FAERS Safety Report 4452583-3 (Version None)
Quarter: 2004Q3

REPORT INFORMATION
  Report Type: 
  Country: None (occurrence: None)
  Receive Date: 20040916
  Receipt Date: 20010409
  Transmission Date: 20050211
  Serious: Yes (Hospitalization)
  Sender: FDA-Public Use
  Company Number: 2004062399

PATIENT
  Age: 71 Year
  Sex: Male
  Weight: 119 kg

DRUGS (2)
  1. QUINAPRIL HCL [Suspect]
     Indication: BLOOD PRESSURE INCREASED
     Dosage: 20 MG (20 MG, 1 IN 1 D), ORAL
     Route: 048
     Dates: end: 20001221
  2. NIFEDIPINE (NIFEDPINE) [Concomitant]

REACTIONS (3)
  - CARDIAC TAMPONADE [None]
  - CARDIOMEGALY [None]
  - PERICARDIAL HAEMORRHAGE [None]
